FAERS Safety Report 20579711 (Version 14)
Quarter: 2023Q1

REPORT INFORMATION
  Report Type: Spontaneous
  Country: PT (occurrence: PT)
  Receive Date: 20220310
  Receipt Date: 20230209
  Transmission Date: 20230418
  Serious: Yes (Death, Life-Threatening, Hospitalization, Other)
  Sender: FDA-Public Use
  Company Number: PT-GILEAD-2022-0570493

PATIENT
  Age: 65 Year
  Sex: Male

DRUGS (8)
  1. YESCARTA [Suspect]
     Active Substance: AXICABTAGENE CILOLEUCEL
     Indication: Diffuse large B-cell lymphoma
     Dosage: UNK
     Route: 065
     Dates: start: 20220207, end: 20220207
  2. ETOPOSIDE [Suspect]
     Active Substance: ETOPOSIDE
     Indication: Product used for unknown indication
     Route: 065
  3. HUMAN IMMUNOGLOBULIN G [Concomitant]
     Active Substance: HUMAN IMMUNOGLOBULIN G
  4. THYMOCYTE IMMUNE GLOBULIN NOS [Concomitant]
     Active Substance: THYMOCYTE IMMUNE GLOBULIN NOS
  5. RITUXIMAB [Concomitant]
     Active Substance: RITUXIMAB
  6. POLATUZUMAB VEDOTIN [Concomitant]
     Active Substance: POLATUZUMAB VEDOTIN
  7. FLUDARABINE [Concomitant]
     Active Substance: FLUDARABINE PHOSPHATE
  8. CYCLOPHOSPHAMIDE [Concomitant]
     Active Substance: CYCLOPHOSPHAMIDE

REACTIONS (25)
  - Central nervous system haemorrhage [Fatal]
  - COVID-19 [Fatal]
  - Acute myeloid leukaemia [Unknown]
  - Cytomegalovirus infection reactivation [Recovered/Resolved]
  - Psychotic disorder [Recovered/Resolved]
  - Immune effector cell-associated neurotoxicity syndrome [Recovered/Resolved]
  - Cytokine release syndrome [Unknown]
  - Thrombocytopenia [Not Recovered/Not Resolved]
  - Renal impairment [Recovering/Resolving]
  - Neurotoxicity [Recovered/Resolved]
  - Cytopenia [Unknown]
  - Neutropenia [Not Recovered/Not Resolved]
  - Respiratory tract infection [Unknown]
  - Pyrexia [Unknown]
  - Dysgraphia [Unknown]
  - Aggression [Recovered/Resolved]
  - Cardiac disorder [Recovered/Resolved]
  - Tremor [Recovering/Resolving]
  - Infection [Recovering/Resolving]
  - White blood cell count decreased [Unknown]
  - Anaemia [Not Recovered/Not Resolved]
  - Somnolence [Recovered/Resolved]
  - Confusional state [Recovered/Resolved]
  - Visual impairment [Recovered/Resolved]
  - Ill-defined disorder [Recovered/Resolved]

NARRATIVE: CASE EVENT DATE: 20220101
